FAERS Safety Report 5632416-X (Version None)
Quarter: 2008Q1

REPORT INFORMATION
  Report Type: 
  Country: None (occurrence: None)
  Receive Date: 20080220
  Receipt Date: 20080124
  Transmission Date: 20080703
  Serious: No
  Sender: FDA-Public Use
  Company Number: US-BOEHRINGER INGELHEIM GMBH, GERMANY-2007-BP-26603BP

PATIENT
  Age: 75 Year
  Sex: Male

DRUGS (6)
  1. FLOMAX [Suspect]
     Indication: PROSTATOMEGALY
     Dates: start: 20070912
  2. ENABLEX [Suspect]
     Indication: HYPERTONIC BLADDER
     Dates: end: 20071203
  3. ENABLEX [Suspect]
     Indication: BLADDER DISORDER
  4. FLONASE [Concomitant]
     Indication: HYPERSENSITIVITY
  5. FLONASE [Concomitant]
     Indication: POSTNASAL DRIP
  6. NEXIUM [Concomitant]
     Indication: GASTROOESOPHAGEAL REFLUX DISEASE

REACTIONS (4)
  - ABDOMINAL PAIN LOWER [None]
  - CONSTIPATION [None]
  - DRUG INEFFECTIVE [None]
  - DRY MOUTH [None]
